FAERS Safety Report 5710197-9 (Version None)
Quarter: 2008Q2

REPORT INFORMATION
  Report Type: 
  Country: None (occurrence: None)
  Receive Date: 20080418
  Receipt Date: 20080407
  Transmission Date: 20081010
  Serious: Yes (Hospitalization)
  Sender: FDA-Public Use
  Company Number: FR-BAXTER-2008BH003316

PATIENT
  Age: 38 Year
  Sex: Female

DRUGS (4)
  1. SUPRANE [Suspect]
     Indication: GENERAL ANAESTHESIA
     Dosage: DOSE UNIT:UNKNOWN
     Route: 055
     Dates: start: 20070913, end: 20070913
  2. SEVORANE [Suspect]
     Indication: GENERAL ANAESTHESIA
     Dosage: DOSE UNIT:UNKNOWN
     Route: 055
     Dates: start: 20050329, end: 20050329
  3. CEFAZOLIN [Suspect]
     Indication: DRUG USE FOR UNKNOWN INDICATION
     Dosage: DOSE UNIT:UNKNOWN
     Route: 042
     Dates: start: 20050329, end: 20050329
  4. CEFAZOLIN [Suspect]
     Dosage: DOSE UNIT:UNKNOWN
     Route: 042
     Dates: start: 20070913, end: 20070913

REACTIONS (2)
  - CHOLESTASIS [None]
  - HEPATITIS [None]
